FAERS Safety Report 9672439 (Version 2)
Quarter: 2013Q4

REPORT INFORMATION
  Report Type: Report from Study
  Country: CA (occurrence: CA)
  Receive Date: 20131106
  Receipt Date: 20131106
  Transmission Date: 20140711
  Serious: Yes (Other)
  Sender: FDA-Public Use
  Company Number: CA-ROCHE-1060388

PATIENT
  Age: 64 Year
  Sex: Male
  Weight: 99.8 kg

DRUGS (13)
  1. RITUXAN [Suspect]
     Indication: RHEUMATOID ARTHRITIS
     Dosage: EVERY 2 WEEKS
     Route: 042
     Dates: start: 20090724
  2. ARTHROTEC [Concomitant]
     Route: 065
  3. METFORMIN [Concomitant]
     Route: 065
  4. VICTOZA [Concomitant]
     Route: 065
  5. LANTUS [Concomitant]
     Route: 065
  6. FENOFIBRATE [Concomitant]
     Route: 065
  7. DIPHENHYDRAMINE HCL [Concomitant]
     Indication: PREMEDICATION
     Route: 048
     Dates: start: 20120319, end: 20120319
  8. DIPHENHYDRAMINE HCL [Concomitant]
     Route: 048
     Dates: start: 20090724
  9. ACETAMINOPHEN [Concomitant]
     Indication: PREMEDICATION
     Route: 048
     Dates: start: 20120319, end: 20120319
  10. ACETAMINOPHEN [Concomitant]
     Route: 048
     Dates: start: 20090724
  11. SOLUCORT [Concomitant]
     Indication: PREMEDICATION
     Route: 042
     Dates: start: 20120319, end: 20120319
  12. SOLUCORT [Concomitant]
     Route: 042
     Dates: start: 20090724
  13. DIAMICRON [Concomitant]

REACTIONS (2)
  - Knee arthroplasty [Recovered/Resolved]
  - Thyroxine abnormal [Unknown]
